FAERS Safety Report 19742373 (Version 2)
Quarter: 2021Q3

REPORT INFORMATION
  Report Type: Spontaneous
  Country: JP (occurrence: JP)
  Receive Date: 20210825
  Receipt Date: 20210917
  Transmission Date: 20211014
  Serious: Yes (Other)
  Sender: FDA-Public Use
  Company Number: NVSJ2021JP012491

PATIENT
  Age: 81 Year
  Sex: Female
  Weight: 38.6 kg

DRUGS (1)
  1. BEOVU [Suspect]
     Active Substance: BROLUCIZUMAB-DBLL
     Indication: NEOVASCULAR AGE-RELATED MACULAR DEGENERATION
     Dosage: 6 MG
     Route: 031
     Dates: start: 20210716, end: 20210716

REACTIONS (6)
  - Visual acuity reduced transiently [Unknown]
  - Retinal vasculitis [Not Recovered/Not Resolved]
  - Iritis [Recovering/Resolving]
  - Keratic precipitates [Unknown]
  - Anterior chamber cell [Unknown]
  - Vitreous floaters [Recovering/Resolving]

NARRATIVE: CASE EVENT DATE: 20210802
